FAERS Safety Report 26135699 (Version 2)
Quarter: 2025Q4

REPORT INFORMATION
  Report Type: Spontaneous
  Country: JP (occurrence: JP)
  Receive Date: 20251209
  Receipt Date: 20251216
  Transmission Date: 20260117
  Serious: Yes (Hospitalization, Other)
  Sender: GILEAD
  Company Number: JP-GILEAD-2025-0739859

PATIENT
  Age: 66 Year
  Sex: Female

DRUGS (9)
  1. TRODELVY [Suspect]
     Active Substance: SACITUZUMAB GOVITECAN-HZIY
     Indication: Triple negative breast cancer
     Dosage: 10 MG/KG
     Route: 065
     Dates: start: 20250311, end: 20250318
  2. TRODELVY [Suspect]
     Active Substance: SACITUZUMAB GOVITECAN-HZIY
     Dosage: UNK
     Route: 065
     Dates: start: 20250415, end: 20251108
  3. MIYA-BM [Concomitant]
     Active Substance: CLOSTRIDIUM BUTYRICUM SPORES STRAIN M-55
     Dosage: UNK
     Dates: start: 20250311
  4. PEGFILGRASTIM [Concomitant]
     Active Substance: PEGFILGRASTIM
     Dosage: UNK
     Dates: start: 20250318
  5. PREDNISOLONE [Concomitant]
     Active Substance: PREDNISOLONE
  6. FAMOTIDINE [Concomitant]
     Active Substance: FAMOTIDINE
  7. SITAGLIPTIN [Concomitant]
     Active Substance: SITAGLIPTIN
  8. PROCATEROL HYDROCHLORIDE [Concomitant]
     Active Substance: PROCATEROL HYDROCHLORIDE
  9. BELSOMRA [Concomitant]
     Active Substance: SUVOREXANT

REACTIONS (7)
  - Cholecystitis [Recovering/Resolving]
  - Diarrhoea [Recovered/Resolved]
  - Liver disorder [Recovered/Resolved]
  - C-reactive protein increased [Recovered/Resolved]
  - Viral infection [Unknown]
  - Fatigue [Unknown]
  - Norovirus infection [Unknown]

NARRATIVE: CASE EVENT DATE: 20250101
